FAERS Safety Report 9156719 (Version 1)
Quarter: 2013Q1

REPORT INFORMATION
  Report Type: Spontaneous
  Country: PR (occurrence: None)
  Receive Date: 20130308
  Receipt Date: 20130308
  Transmission Date: 20140127
  Serious: Yes (Life-Threatening, Hospitalization, Other)
  Sender: FDA-Public Use
  Company Number: None

PATIENT
  Age: 60 Year
  Sex: Male
  Weight: 66.3 kg

DRUGS (2)
  1. FLUOROURACIL [Suspect]
     Indication: ADENOCARCINOMA
     Dosage: VARYING MG OTHER IV
     Route: 042
     Dates: start: 20111219, end: 20120925
  2. BEVACIZUMAB [Suspect]
     Indication: ADENOCARCINOMA
     Route: 042
     Dates: start: 20110808, end: 20120529

REACTIONS (2)
  - Bradycardia [None]
  - Myocardial infarction [None]
